FAERS Safety Report 22695325 (Version 2)
Quarter: 2024Q1

REPORT INFORMATION
  Report Type: Report from Study
  Country: US (occurrence: US)
  Receive Date: 20230712
  Receipt Date: 20240229
  Transmission Date: 20240410
  Serious: Yes (Hospitalization, Other)
  Sender: FDA-Public Use
  Company Number: US-TAKEDA-2023TUS067826

PATIENT
  Sex: Female

DRUGS (2)
  1. HUMAN IMMUNOGLOBULIN G [Suspect]
     Active Substance: HUMAN IMMUNOGLOBULIN G
     Indication: Primary immunodeficiency syndrome
     Dosage: 40 GRAM, Q4WEEKS
     Route: 042
  2. HUMAN IMMUNOGLOBULIN G [Suspect]
     Active Substance: HUMAN IMMUNOGLOBULIN G
     Indication: Hypogammaglobulinaemia
     Dosage: 50 GRAM, MONTHLY
     Route: 065

REACTIONS (9)
  - Pneumonia [Unknown]
  - Mastitis [Unknown]
  - Staphylococcal infection [Unknown]
  - Mastoiditis [Unknown]
  - Post-acute COVID-19 syndrome [Unknown]
  - Brain fog [Unknown]
  - Gait disturbance [Unknown]
  - Neoplasm malignant [Unknown]
  - Insurance issue [Unknown]
